FAERS Safety Report 4608568-7 (Version None)
Quarter: 2005Q1

REPORT INFORMATION
  Report Type: 
  Country: None (occurrence: None)
  Receive Date: 20050315
  Receipt Date: 20050304
  Transmission Date: 20050727
  Serious: Yes (Other)
  Sender: FDA-Public Use
  Company Number: PHEH2005US02740

PATIENT
  Age: 86 Year
  Sex: Male

DRUGS (5)
  1. LOTREL [Suspect]
     Indication: HYPERTENSION
     Dosage: 5 MG AMLOD/10 MG BENAZ QD
     Route: 048
     Dates: start: 20050103, end: 20050103
  2. PROBENECID [Concomitant]
     Indication: GOUT
     Dates: start: 20041122
  3. NORPRAMIN [Concomitant]
  4. ASPIRIN [Concomitant]
  5. LABETALOL HCL [Concomitant]

REACTIONS (5)
  - BLINDNESS [None]
  - BLOOD PRESSURE INCREASED [None]
  - DISORIENTATION [None]
  - DYSARTHRIA [None]
  - URINARY TRACT INFECTION [None]
